FAERS Safety Report 13059226 (Version 2)
Quarter: 2017Q4

REPORT INFORMATION
  Report Type: Spontaneous
  Country: US (occurrence: US)
  Receive Date: 20161223
  Receipt Date: 20171116
  Transmission Date: 20180320
  Serious: No
  Sender: FDA-Public Use
  Company Number: US-BAUSCH-BL-2016-022077

PATIENT
  Sex: Male

DRUGS (2)
  1. XENAZINE [Suspect]
     Active Substance: TETRABENAZINE
     Indication: DYSKINESIA
     Dosage: 2.5 TABLETS IN MORNING, 2 TABLETS AT NOON, AND 2 TABLETS IN EVENING
     Route: 048
     Dates: start: 20160721
  2. XENAZINE [Suspect]
     Active Substance: TETRABENAZINE
     Indication: TARDIVE DYSKINESIA

REACTIONS (3)
  - Drug ineffective for unapproved indication [Unknown]
  - Off label use [Unknown]
  - Drug administration error [Unknown]

NARRATIVE: CASE EVENT DATE: 2016
